FAERS Safety Report 11828569 (Version 4)
Quarter: 2016Q1

REPORT INFORMATION
  Report Type: Spontaneous
  Country: JP (occurrence: JP)
  Receive Date: 20151211
  Receipt Date: 20160122
  Transmission Date: 20160525
  Serious: Yes (Other)
  Sender: FDA-Public Use
  Company Number: JP-PFIZER INC-2015430807

PATIENT
  Age: 74 Year
  Sex: Female
  Weight: 42 kg

DRUGS (3)
  1. FENTOS [Concomitant]
     Active Substance: FENTANYL
     Dosage: 2 MG, 1X/DAY
     Route: 062
     Dates: start: 20151204
  2. XALKORI [Suspect]
     Active Substance: CRIZOTINIB
     Indication: NON-SMALL CELL LUNG CANCER
     Dosage: 250 MG, 2X/DAY
     Route: 048
     Dates: start: 20151118, end: 20151204
  3. INTRALIPOS [Concomitant]
     Active Substance: SOYBEAN OIL
     Indication: MALNUTRITION
     Dosage: 100 MG ONCE OR TWICE DAILY
     Route: 041
     Dates: start: 20151204, end: 20151210

REACTIONS (4)
  - Hyperkalaemia [Recovered/Resolved]
  - Diarrhoea [Unknown]
  - Hepatic enzyme increased [Not Recovered/Not Resolved]
  - Blood creatine phosphokinase increased [Recovering/Resolving]

NARRATIVE: CASE EVENT DATE: 201512
